FAERS Safety Report 19893491 (Version 2)
Quarter: 2021Q4

REPORT INFORMATION
  Report Type: Spontaneous
  Country: FR (occurrence: FR)
  Receive Date: 20210928
  Receipt Date: 20211117
  Transmission Date: 20220303
  Serious: Yes (Hospitalization, Other)
  Sender: FDA-Public Use
  Company Number: FR-NOVARTISPH-NVSC2021FR219464

PATIENT
  Sex: Male
  Weight: 58 kg

DRUGS (10)
  1. COSENTYX [Suspect]
     Active Substance: SECUKINUMAB
     Indication: Psoriatic arthropathy
     Dosage: 2 DF (2 INJECTION OF 150 MG), QW
     Route: 065
     Dates: start: 20210531, end: 20210628
  2. COSENTYX [Suspect]
     Active Substance: SECUKINUMAB
     Indication: Psoriasis
  3. ACETAMINOPHEN [Concomitant]
     Active Substance: ACETAMINOPHEN
     Indication: Product used for unknown indication
     Dosage: UNK UNK, PRN (USUAL TREATMENT, IF NEEDED)
     Route: 065
  4. ACETAMINOPHEN [Concomitant]
     Active Substance: ACETAMINOPHEN
     Dosage: 1 G; 1 TABLET EACH TIME (MAX 3 TABLETS DAILY)
     Route: 065
  5. FOLIC ACID [Concomitant]
     Active Substance: FOLIC ACID
     Indication: Product used for unknown indication
     Dosage: UNK UNK, BID (1 TABLET IN THE MORNING AND 1 IN THE EVENING)
     Route: 065
  6. PANTOPRAZOLE [Concomitant]
     Active Substance: PANTOPRAZOLE
     Indication: Product used for unknown indication
     Dosage: 1 DF, QD (IN THE MORNING)
     Route: 065
  7. CALCIVIT D3 [Concomitant]
     Indication: Product used for unknown indication
     Dosage: 1 DF, QD (IN THE EVENING)
     Route: 065
  8. ATARAX [Concomitant]
     Active Substance: HYDROXYZINE HYDROCHLORIDE
     Indication: Product used for unknown indication
     Dosage: 1 DF, QD (IN THE EVENING)
     Route: 065
  9. LOVENOX [Concomitant]
     Active Substance: ENOXAPARIN SODIUM
     Indication: Product used for unknown indication
     Dosage: 40 MG, QD, DAY UNTIL PLATELET?S COUNT WAS NORMALIZED
     Route: 058
  10. PREDNISONE [Concomitant]
     Active Substance: PREDNISONE
     Indication: Product used for unknown indication
     Dosage: UNK, 50 MG IN THE MORNING DURING 3 DAYS, THEN 40 MG PER DAY DURING 3 DAYS, THEN 30 MG PER DAY DURING
     Route: 065

REACTIONS (13)
  - Colitis [Unknown]
  - Diarrhoea haemorrhagic [Unknown]
  - Inflammatory bowel disease [Unknown]
  - Abdominal pain [Unknown]
  - Weight decreased [Unknown]
  - Pyrexia [Unknown]
  - Lower gastrointestinal haemorrhage [Unknown]
  - Sepsis [Unknown]
  - General physical health deterioration [Unknown]
  - C-reactive protein increased [Unknown]
  - Hepatic function abnormal [Unknown]
  - Chest pain [Unknown]
  - Inflammation [Unknown]

NARRATIVE: CASE EVENT DATE: 20210712
